FAERS Safety Report 5212573-X (Version None)
Quarter: 2007Q1

REPORT INFORMATION
  Report Type: 
  Country: None (occurrence: None)
  Receive Date: 20070118
  Receipt Date: 20070109
  Transmission Date: 20070707
  Serious: Yes (Death, Hospitalization, Other)
  Sender: FDA-Public Use
  Company Number: JP-PFIZER INC-2006156054

PATIENT
  Age: 79 Year
  Sex: Female

DRUGS (3)
  1. SULPERAZON [Suspect]
     Indication: PYREXIA
     Dosage: DAILY DOSE:2GRAM
     Route: 042
     Dates: start: 20060824, end: 20060828
  2. TEGAFUR/GIMERACIL/OTERACIL POTASSIUM [Concomitant]
     Route: 048
     Dates: start: 20060817, end: 20060823
  3. TAXOTERE [Concomitant]
     Route: 042
     Dates: start: 20060817

REACTIONS (3)
  - LARGE INTESTINE CARCINOMA [None]
  - NEUTROPENIA [None]
  - STEVENS-JOHNSON SYNDROME [None]
